FAERS Safety Report 4455609-6 (Version None)
Quarter: 2004Q3

REPORT INFORMATION
  Report Type: 
  Country: None (occurrence: None)
  Receive Date: 20040922
  Receipt Date: 20040910
  Transmission Date: 20050211
  Serious: Yes (Hospitalization)
  Sender: FDA-Public Use
  Company Number: FR-JNJFOC-20040900961

PATIENT
  Age: 14 Year
  Sex: Male

DRUGS (4)
  1. RISPERDAL [Suspect]
     Indication: ACUTE PSYCHOSIS
     Route: 049
  2. HALDOL [Suspect]
     Indication: AGITATION
     Dosage: SOLUTION INJECTABLE 5 MG
     Route: 042
  3. TERCIAN [Concomitant]
     Indication: ACUTE PSYCHOSIS
     Route: 065
  4. LEVOMEPROMAZINE [Concomitant]
     Indication: DELUSIONAL DISORDER, UNSPECIFIED TYPE

REACTIONS (4)
  - ALANINE AMINOTRANSFERASE INCREASED [None]
  - BLOOD CREATINE PHOSPHOKINASE INCREASED [None]
  - DRUG INTERACTION [None]
  - RHABDOMYOLYSIS [None]
